FAERS Safety Report 16824346 (Version 1)
Quarter: 2019Q3

REPORT INFORMATION
  Report Type: Spontaneous
  Country: ES (occurrence: ES)
  Receive Date: 20190918
  Receipt Date: 20190918
  Transmission Date: 20191005
  Serious: Yes (Death, Hospitalization)
  Sender: FDA-Public Use
  Company Number: ES-MYLANLABS-2019M1087840

PATIENT
  Age: 67 Year
  Sex: Male

DRUGS (5)
  1. METILPREDNISOLONA                  /00049601/ [Interacting]
     Active Substance: METHYLPREDNISOLONE
     Indication: RENAL TRANSPLANT
     Dosage: 20 MILLIGRAM, QD
     Route: 042
     Dates: start: 20181129, end: 20181202
  2. MYCOPHENOLATE MOFETIL. [Suspect]
     Active Substance: MYCOPHENOLATE MOFETIL
     Indication: RENAL TRANSPLANT
     Dosage: 750 MILLIGRAM, BID
     Route: 048
     Dates: start: 20181127, end: 20181202
  3. INMUNOGLOBULINA HUMANA (IMMUNOGLOBULIN G HUMAN) [Interacting]
     Active Substance: HUMAN IMMUNOGLOBULIN G
     Indication: RENAL TRANSPLANT
     Dosage: 90 MILLIGRAM, QD
     Route: 042
     Dates: start: 20181127, end: 20181202
  4. TACROLIMUS. [Interacting]
     Active Substance: TACROLIMUS
     Indication: RENAL TRANSPLANT
     Dosage: 12 MILLIGRAM, QD
     Route: 048
     Dates: start: 20181127, end: 20181202
  5. METILPREDNISOLONA                  /00049601/ [Concomitant]
     Active Substance: METHYLPREDNISOLONE
     Indication: RENAL TRANSPLANT
     Dosage: 250 MILLIGRAM, QD
     Route: 042
     Dates: start: 20181127, end: 20181129

REACTIONS (2)
  - Drug interaction [Unknown]
  - Klebsiella sepsis [Fatal]

NARRATIVE: CASE EVENT DATE: 20181201
